FAERS Safety Report 17544981 (Version 4)
Quarter: 2020Q3

REPORT INFORMATION
  Report Type: Spontaneous
  Country: DE (occurrence: DE)
  Receive Date: 20200316
  Receipt Date: 20200723
  Transmission Date: 20201102
  Serious: Yes (Disabling, Congenital Anomaly, Other)
  Sender: FDA-Public Use
  Company Number: DE-PFIZER INC-2020107772

PATIENT
  Sex: Male
  Weight: 3.78 kg

DRUGS (2)
  1. CYTOTEC [Suspect]
     Active Substance: MISOPROSTOL
     Dosage: 100 UG, SINGLE
     Route: 064
     Dates: start: 20110802, end: 20110802
  2. CYTOTEC [Suspect]
     Active Substance: MISOPROSTOL
     Indication: LABOUR INDUCTION
     Dosage: 50 UG, SINGLE
     Route: 064
     Dates: start: 20110802, end: 20110802

REACTIONS (13)
  - Disturbance in social behaviour [Unknown]
  - External auditory canal atresia [Unknown]
  - Encopresis [Unknown]
  - Foetal exposure during pregnancy [Unknown]
  - Developmental delay [Recovered/Resolved with Sequelae]
  - Autism spectrum disorder [Unknown]
  - Conductive deafness [Unknown]
  - Constipation [Unknown]
  - Speech disorder developmental [Unknown]
  - Intellectual disability [Recovered/Resolved with Sequelae]
  - Impulsive behaviour [Unknown]
  - Microtia [Unknown]
  - Enuresis [Unknown]

NARRATIVE: CASE EVENT DATE: 20110803
